FAERS Safety Report 26183607 (Version 1)
Quarter: 2025Q4

REPORT INFORMATION
  Report Type: Spontaneous
  Country: US (occurrence: US)
  Receive Date: 20251221
  Receipt Date: 20251221
  Transmission Date: 20260117
  Serious: No
  Sender: ALEXION PHARMACEUTICALS
  Company Number: US-AstraZeneca-CH-01015587AP

PATIENT
  Sex: Female

DRUGS (2)
  1. BREZTRI [Suspect]
     Active Substance: BUDESONIDE\FORMOTEROL\GLYCOPYRROLATE
     Indication: Chronic obstructive pulmonary disease
     Route: 065
     Dates: start: 202411
  2. BREZTRI [Suspect]
     Active Substance: BUDESONIDE\FORMOTEROL\GLYCOPYRROLATE
     Indication: Emphysema

REACTIONS (6)
  - Cough [Unknown]
  - Oxygen therapy [Unknown]
  - Oxygen saturation decreased [Recovering/Resolving]
  - Incorrect dose administered by device [Unknown]
  - Product dose omission issue [Unknown]
  - Wrong technique in product usage process [Unknown]
